FAERS Safety Report 12989261 (Version 1)
Quarter: 2016Q4

REPORT INFORMATION
  Report Type: Spontaneous
  Country: US (occurrence: US)
  Receive Date: 20161201
  Receipt Date: 20161201
  Transmission Date: 20170207
  Serious: No
  Sender: FDA-Public Use
  Company Number: US-009507513-1611USA009208

PATIENT
  Sex: Male

DRUGS (2)
  1. RIBAVIRIN. [Suspect]
     Active Substance: RIBAVIRIN
     Indication: HEPATITIS C
     Route: 048
  2. LEDIPASVIR (+) SOFOSBUVIR [Concomitant]
     Active Substance: LEDIPASVIR\SOFOSBUVIR

REACTIONS (5)
  - Abdominal pain [Unknown]
  - Nausea [Unknown]
  - Fatigue [Unknown]
  - Vomiting [Unknown]
  - Pruritus [Unknown]
